FAERS Safety Report 18572158 (Version 1)
Quarter: 2020Q4

REPORT INFORMATION
  Report Type: Report from Study
  Country: CL (occurrence: CL)
  Receive Date: 20201202
  Receipt Date: 20201202
  Transmission Date: 20210114
  Serious: Yes (Hospitalization, Other)
  Sender: FDA-Public Use
  Company Number: CL-EMD SERONO-9201670

PATIENT
  Age: 26 Year
  Sex: Male

DRUGS (5)
  1. MAVENCLAD [Suspect]
     Active Substance: CLADRIBINE
     Dosage: SECOND YEAR SECOND CYCLE : TOOK TWO TABLETS ON DAY 1 AND ONE TABLET ON DAYS 3 TO 4.
     Route: 048
     Dates: start: 20200930
  2. ACYCLOVIR                          /00587301/ [Concomitant]
     Active Substance: ACYCLOVIR
     Indication: PROPHYLAXIS
  3. MAVENCLAD [Suspect]
     Active Substance: CLADRIBINE
     Indication: MULTIPLE SCLEROSIS
     Dosage: FIRST YEAR FIRST CYCLE : TOOK TWO TABLETS ON DAYS 1 AND 2 AND ONE TABLET ON DAYS 3 TO 5.
     Route: 048
     Dates: start: 20190902
  4. MAVENCLAD [Suspect]
     Active Substance: CLADRIBINE
     Dosage: SECOND YEAR FIRST CYCLE : TOOK TWO TABLETS ON DAY 1 AND ONE TABLET ON DAYS 3 TO 4.
     Route: 048
     Dates: start: 20200902
  5. MAVENCLAD [Suspect]
     Active Substance: CLADRIBINE
     Dosage: FIRST YEAR SECOND CYCLE : TOOK TWO TABLETS ON DAYS 1 AND 2 AND ONE TABLET ON DAYS 3 TO 5.
     Route: 048
     Dates: start: 20190930

REACTIONS (6)
  - Speech disorder [Recovering/Resolving]
  - Central nervous system lesion [Recovering/Resolving]
  - Encephalitis [Recovering/Resolving]
  - Pyrexia [Recovering/Resolving]
  - Multiple sclerosis relapse [Recovering/Resolving]
  - Lymphopenia [Unknown]

NARRATIVE: CASE EVENT DATE: 202011
